FAERS Safety Report 16970346 (Version 5)
Quarter: 2021Q2

REPORT INFORMATION
  Report Type: Spontaneous
  Country: US (occurrence: US)
  Receive Date: 20191029
  Receipt Date: 20210628
  Transmission Date: 20210716
  Serious: Yes (Other)
  Sender: FDA-Public Use
  Company Number: US-GILEAD-2019-0434731

PATIENT
  Sex: Female
  Weight: 61.22 kg

DRUGS (19)
  1. VIREAD [Suspect]
     Active Substance: TENOFOVIR DISOPROXIL FUMARATE
     Indication: HIV INFECTION
     Dosage: UNK
     Route: 048
     Dates: start: 2001, end: 2010
  2. ACETAMINOPHEN. [Concomitant]
     Active Substance: ACETAMINOPHEN
  3. K PHOS ORIGINAL [Concomitant]
     Active Substance: POTASSIUM PHOSPHATE, MONOBASIC
  4. PREZISTA [Concomitant]
     Active Substance: DARUNAVIR ETHANOLATE
  5. PREDNISOLONE ACETATE. [Concomitant]
     Active Substance: PREDNISOLONE ACETATE
  6. VIREAD [Suspect]
     Active Substance: TENOFOVIR DISOPROXIL FUMARATE
     Dosage: UNK
     Route: 048
     Dates: start: 2001, end: 20100420
  7. CICLESONIDE [Concomitant]
     Active Substance: CICLESONIDE
  8. PANTOPRAZOLE [Concomitant]
     Active Substance: PANTOPRAZOLE
  9. SELZENTRY [Concomitant]
     Active Substance: MARAVIROC
  10. BRIMONIDINE [Concomitant]
     Active Substance: BRIMONIDINE TARTRATE
  11. VITAMIN D [VITAMIN D NOS] [Concomitant]
     Active Substance: VITAMIN D NOS
  12. ACYCLOVIR [ACICLOVIR] [Concomitant]
     Active Substance: ACYCLOVIR
  13. OMEPRAZOLE. [Concomitant]
     Active Substance: OMEPRAZOLE
  14. LEXIVA [Concomitant]
     Active Substance: FOSAMPRENAVIR CALCIUM
  15. NORVIR [Concomitant]
     Active Substance: RITONAVIR
  16. DOXYCYCLINE MONOHYDRATE [Concomitant]
     Active Substance: DOXYCYCLINE
  17. ASPIRIN (E.C.) [Concomitant]
     Active Substance: ASPIRIN
  18. GANCICLOVIR. [Concomitant]
     Active Substance: GANCICLOVIR
  19. ISENTRESS [Concomitant]
     Active Substance: RALTEGRAVIR POTASSIUM

REACTIONS (17)
  - Fatigue [Unknown]
  - Vitamin D decreased [Unknown]
  - Bone density decreased [Not Recovered/Not Resolved]
  - Emotional distress [Recovered/Resolved]
  - Economic problem [Not Recovered/Not Resolved]
  - Glycosuria [Unknown]
  - Back pain [Unknown]
  - Depression [Recovered/Resolved]
  - Pathological fracture [Unknown]
  - Osteopenia [Not Recovered/Not Resolved]
  - Anxiety [Recovered/Resolved]
  - Anhedonia [Not Recovered/Not Resolved]
  - Pain [Recovered/Resolved]
  - Osteoporosis [Not Recovered/Not Resolved]
  - Fanconi syndrome acquired [Unknown]
  - Renal failure [Unknown]
  - Proteinuria [Unknown]

NARRATIVE: CASE EVENT DATE: 2008
